FAERS Safety Report 5563312-4 (Version None)
Quarter: 2007Q4

REPORT INFORMATION
  Report Type: 
  Country: None (occurrence: None)
  Receive Date: 20071217
  Receipt Date: 20071207
  Transmission Date: 20080405
  Serious: Yes (Hospitalization, Disabling)
  Sender: FDA-Public Use
  Company Number: FR-ASTRAZENECA-2006CG02012

PATIENT
  Age: 75 Year
  Sex: Male

DRUGS (6)
  1. CRESTOR [Suspect]
     Indication: CARDIOVASCULAR EVENT PROPHYLAXIS
     Route: 048
     Dates: start: 20061102, end: 20061207
  2. TICLID [Suspect]
     Dates: start: 20061102, end: 20061106
  3. MEDIATOR [Suspect]
     Dates: start: 20061102, end: 20061106
  4. KARDEGIC [Concomitant]
     Dates: start: 20061102
  5. RAMIPRIL [Concomitant]
     Dates: start: 20061102
  6. DILTIAZEM [Concomitant]
     Dates: start: 20061102

REACTIONS (1)
  - CROHN'S DISEASE [None]
